FAERS Safety Report 9852482 (Version 1)
Quarter: 2014Q1

REPORT INFORMATION
  Report Type: Spontaneous
  Country: US (occurrence: US)
  Receive Date: 20140129
  Receipt Date: 20140129
  Transmission Date: 20141002
  Serious: Yes (Other)
  Sender: FDA-Public Use
  Company Number: US-DYAX CORP.-2014DX000007

PATIENT
  Sex: Female

DRUGS (2)
  1. KALBITOR [Suspect]
     Indication: HEREDITARY ANGIOEDEMA
     Route: 065
  2. BENADRYL [Concomitant]
     Indication: PREMEDICATION
     Route: 065

REACTIONS (3)
  - Hypersensitivity [Unknown]
  - Hypertension [Unknown]
  - Off label use [Unknown]
